FAERS Safety Report 7547035-8 (Version None)
Quarter: 2011Q2

REPORT INFORMATION
  Report Type: 
  Country: None (occurrence: None)
  Receive Date: 20110614
  Receipt Date: 20110609
  Transmission Date: 20111010
  Serious: Yes (Other)
  Sender: FDA-Public Use
  Company Number: US-SANOFI-AVENTIS-2011SA036791

PATIENT
  Age: 84 Year
  Sex: Female

DRUGS (8)
  1. ALL OTHER THERAPEUTIC PRODUCTS [Concomitant]
  2. FOSINOPRIL SODIUM [Concomitant]
  3. VITAMINS NOS [Concomitant]
  4. VALIUM [Concomitant]
  5. POTASSIUM CHLORIDE [Concomitant]
  6. ZOLOFT [Concomitant]
  7. PLAVIX [Suspect]
     Route: 048
  8. LASIX [Concomitant]

REACTIONS (3)
  - CEREBRAL THROMBOSIS [None]
  - FALL [None]
  - LACERATION [None]
